FAERS Safety Report 21127997 (Version 1)
Quarter: 2022Q3

REPORT INFORMATION
  Report Type: Spontaneous
  Country: US (occurrence: US)
  Receive Date: 20220725
  Receipt Date: 20220725
  Transmission Date: 20221026
  Serious: No
  Sender: FDA-Public Use
  Company Number: US-ABBVIE-22K-163-4445954-00

PATIENT
  Sex: Female
  Weight: 68.100 kg

DRUGS (2)
  1. SYNTHROID [Suspect]
     Active Substance: LEVOTHYROXINE SODIUM
     Indication: Hypothyroidism
     Route: 048
     Dates: start: 2017
  2. CALCIUM CARBONATE [Suspect]
     Active Substance: CALCIUM CARBONATE
     Indication: Product used for unknown indication
     Route: 065

REACTIONS (9)
  - Hyperthyroidism [Not Recovered/Not Resolved]
  - Blood calcium increased [Unknown]
  - Fatigue [Not Recovered/Not Resolved]
  - Abdominal discomfort [Recovered/Resolved]
  - Gastric pH decreased [Unknown]
  - Adverse drug reaction [Unknown]
  - Constipation [Not Recovered/Not Resolved]
  - Thyroid mass [Not Recovered/Not Resolved]
  - Bone density abnormal [Not Recovered/Not Resolved]

NARRATIVE: CASE EVENT DATE: 20210101
